FAERS Safety Report 4487510-6 (Version None)
Quarter: 2004Q3

REPORT INFORMATION
  Report Type: 
  Country: None (occurrence: None)
  Receive Date: 20040921
  Receipt Date: 20040416
  Transmission Date: 20050211
  Serious: Yes (Other)
  Sender: FDA-Public Use
  Company Number: 163-20785-04040417(0)

PATIENT
  Age: 76 Year
  Sex: Male

DRUGS (9)
  1. THALOMID [Suspect]
     Indication: MULTIPLE MYELOMA
     Dosage: 100 MG, DAILY, ORAL
     Route: 048
     Dates: start: 20040101
  2. PLAVIX [Concomitant]
  3. ASPIRIN [Concomitant]
  4. ZOMETA [Concomitant]
  5. COREG [Concomitant]
  6. FOLIC ACID [Concomitant]
  7. LIPITOR [Concomitant]
  8. NITROGLYCERIN [Concomitant]
  9. CAPTOPRIL [Concomitant]

REACTIONS (1)
  - THROMBOCYTOPENIA [None]
